FAERS Safety Report 8065968-3 (Version None)
Quarter: 2012Q1

REPORT INFORMATION
  Report Type: 
  Country: None (occurrence: None)
  Receive Date: 20120124
  Receipt Date: 20120117
  Transmission Date: 20120608
  Serious: Yes (Life-Threatening, Hospitalization)
  Sender: FDA-Public Use
  Company Number: US-AMGEN-USASP2011050100

PATIENT
  Age: 67 Year
  Sex: Male
  Weight: 136.1 kg

DRUGS (10)
  1. MIRAPEX [Concomitant]
     Dosage: UNK
  2. EFFEXOR [Concomitant]
     Dosage: UNK
  3. LEVOXYL [Concomitant]
     Dosage: UNK
  4. HYDROCHLOROTHIAZIDE [Concomitant]
     Dosage: UNK
  5. TRAZODONE HCL [Concomitant]
     Dosage: UNK
  6. ENBREL [Suspect]
     Indication: PSORIASIS
     Dosage: 50 MG, QWK
     Dates: start: 20090501, end: 20110901
  7. PROMETHAZINE [Concomitant]
     Dosage: UNK
  8. FUROSEMIDE [Concomitant]
     Dosage: UNK
  9. ATENOLOL [Concomitant]
     Dosage: UNK
  10. LIPITOR [Concomitant]
     Dosage: UNK

REACTIONS (4)
  - STREPTOCOCCAL SEPSIS [None]
  - LOSS OF CONSCIOUSNESS [None]
  - FALL [None]
  - CELLULITIS [None]
